FAERS Safety Report 6701199-4 (Version None)
Quarter: 2010Q2

REPORT INFORMATION
  Report Type: 
  Country: None (occurrence: None)
  Receive Date: 20100428
  Receipt Date: 20100428
  Transmission Date: 20101027
  Serious: Yes (Other)
  Sender: FDA-Public Use
  Company Number: None

PATIENT
  Sex: Female
  Weight: 55.0667 kg

DRUGS (3)
  1. TEGRETOL [Suspect]
     Indication: BIPOLAR I DISORDER
     Dosage: 2 TABS BID PO
     Route: 048
     Dates: start: 20080701, end: 20080801
  2. TEGRETOL [Suspect]
     Indication: CONVULSION
     Dosage: 2 TABS BID PO
     Route: 048
     Dates: start: 20080701, end: 20080801
  3. DILANTIN [Concomitant]

REACTIONS (2)
  - PRODUCT SUBSTITUTION ISSUE [None]
  - THERAPEUTIC RESPONSE DECREASED [None]
